FAERS Safety Report 5007481-3 (Version None)
Quarter: 2006Q2

REPORT INFORMATION
  Report Type: 
  Country: None (occurrence: None)
  Receive Date: 20060517
  Receipt Date: 20060504
  Transmission Date: 20061013
  Serious: Yes (Other)
  Sender: FDA-Public Use
  Company Number: 224521

PATIENT
  Age: 74 Year
  Sex: Male

DRUGS (10)
  1. RAPTIVA [Suspect]
     Indication: PSORIASIS
     Dosage: 0.7 ML, 1/WEEK, SUBCUTANEOUS
     Route: 058
     Dates: start: 20041201
  2. RAPTIVA [Suspect]
     Indication: PSORIASIS
     Dosage: 0.7 ML, 1/WEEK, SUBCUTANEOUS
     Route: 058
     Dates: start: 20060201
  3. ANTI-INFLAMMATORY MEDICATION (ANTI-INFLAMMATORY AGENT NOS) [Concomitant]
  4. TOPICAL MEDICATION (GENERIC COMPONENTS) [Concomitant]
  5. NEXIUM [Concomitant]
  6. SORIATANE [Concomitant]
  7. LIPITOR [Concomitant]
  8. FLOMAX [Concomitant]
  9. FOLIC ACID [Concomitant]
  10. ASPIRIN [Concomitant]

REACTIONS (3)
  - FUNGAL INFECTION [None]
  - RASH [None]
  - RETINAL DETACHMENT [None]
